FAERS Safety Report 9462262 (Version 1)
Quarter: 2013Q3

REPORT INFORMATION
  Report Type: Spontaneous
  Country: FR (occurrence: FR)
  Receive Date: 20130816
  Receipt Date: 20130816
  Transmission Date: 20140515
  Serious: Yes (Hospitalization)
  Sender: FDA-Public Use
  Company Number: FR-GLAXOSMITHKLINE-B0914142A

PATIENT
  Age: 83 Year
  Sex: Male

DRUGS (11)
  1. ARIXTRA [Suspect]
     Indication: THROMBOSIS PROPHYLAXIS
     Dosage: 2.5MG UNKNOWN
     Route: 058
     Dates: start: 20130215, end: 20130302
  2. KARDEGIC [Suspect]
     Indication: THROMBOSIS PROPHYLAXIS
     Dosage: 75MG UNKNOWN
     Route: 048
     Dates: start: 20130115, end: 20130302
  3. CARDENSIEL [Concomitant]
     Dosage: 2.5MG UNKNOWN
     Route: 048
     Dates: start: 20130615
  4. INIPOMP [Concomitant]
     Dosage: 20MG UNKNOWN
     Route: 048
  5. TOPALGIC ( FRANCE ) [Concomitant]
     Dosage: 50MG UNKNOWN
     Route: 048
     Dates: start: 20120615, end: 20130302
  6. TAHOR [Concomitant]
     Dosage: 40MG PER DAY
     Route: 065
  7. TAREG [Concomitant]
     Dosage: 80MG PER DAY
     Route: 065
  8. TRAMADOL HYDROCHLORIDE [Concomitant]
     Dosage: 50MG TWICE PER DAY
     Route: 048
  9. DAFALGAN [Concomitant]
     Dosage: 3G PER DAY
     Route: 065
  10. PLAVIX [Concomitant]
     Route: 065
  11. NON STEROIDAL ANTI-INFLAMMATORY [Concomitant]
     Route: 065

REACTIONS (5)
  - Melaena [Recovering/Resolving]
  - Vomiting [Unknown]
  - Conjunctival pallor [Unknown]
  - Peptic ulcer [Unknown]
  - Duodenal polyp [Unknown]
